FAERS Safety Report 20734635 (Version 1)
Quarter: 2022Q2

REPORT INFORMATION
  Report Type: Spontaneous
  Country: US (occurrence: US)
  Receive Date: 20220421
  Receipt Date: 20220421
  Transmission Date: 20220721
  Serious: Yes (Hospitalization)
  Sender: FDA-Public Use
  Company Number: US-drreddys-LIT/USA/22/0149037

PATIENT
  Sex: Female

DRUGS (4)
  1. BORTEZOMIB [Suspect]
     Active Substance: BORTEZOMIB
     Indication: Lymphoplasmacytoid lymphoma/immunocytoma
     Dosage: SINGLE DOSE
  2. BORTEZOMIB [Suspect]
     Active Substance: BORTEZOMIB
     Indication: Amyloidosis
  3. RITUXIMAB [Suspect]
     Active Substance: RITUXIMAB
     Indication: Lymphoplasmacytoid lymphoma/immunocytoma
     Dosage: SINGLE DOSE
  4. RITUXIMAB [Suspect]
     Active Substance: RITUXIMAB
     Indication: Amyloidosis

REACTIONS (3)
  - Infusion related reaction [Recovering/Resolving]
  - Hypervolaemia [Recovering/Resolving]
  - Cardiac failure [Recovering/Resolving]
